FAERS Safety Report 17812839 (Version 1)
Quarter: 2020Q2

REPORT INFORMATION
  Report Type: Spontaneous
  Country: US (occurrence: US)
  Receive Date: 20200521
  Receipt Date: 20200521
  Transmission Date: 20200714
  Serious: Yes (Life-Threatening, Hospitalization)
  Sender: FDA-Public Use
  Company Number: None

PATIENT
  Age: 65 Year
  Sex: Female
  Weight: 56 kg

DRUGS (6)
  1. RASBURICASE [Concomitant]
     Active Substance: RASBURICASE
     Dates: start: 20200511
  2. PALONOSETRON. [Concomitant]
     Active Substance: PALONOSETRON HYDROCHLORIDE
     Dates: start: 20200511
  3. ACETAMINOPHEN. [Concomitant]
     Active Substance: ACETAMINOPHEN
     Dates: start: 20200511
  4. SODIUM CHLORIDE 0.9% [Concomitant]
     Active Substance: SODIUM CHLORIDE
     Dates: start: 20200511
  5. DIPHENHYDRAMINE. [Concomitant]
     Active Substance: DIPHENHYDRAMINE
     Dates: start: 20200511
  6. RITUXAN [Suspect]
     Active Substance: RITUXIMAB
     Indication: MANTLE CELL LYMPHOMA
     Dosage: ?          OTHER FREQUENCY:EVERY 2 MONTHS;?
     Route: 042
     Dates: start: 20200511, end: 20200513

REACTIONS (4)
  - Anaphylactic reaction [None]
  - Respiratory arrest [None]
  - Infusion related reaction [None]
  - Drug hypersensitivity [None]

NARRATIVE: CASE EVENT DATE: 20200511
